FAERS Safety Report 8055697-4 (Version None)
Quarter: 2012Q1

REPORT INFORMATION
  Report Type: 
  Country: None (occurrence: None)
  Receive Date: 20120119
  Receipt Date: 20120112
  Transmission Date: 20120608
  Serious: Yes (Hospitalization, Other)
  Sender: FDA-Public Use
  Company Number: US-SANOFI-AVENTIS-2011SA065119

PATIENT
  Age: 68 Year
  Sex: Female
  Weight: 52.3 kg

DRUGS (19)
  1. ZIAC [Concomitant]
     Indication: HYPERTENSION
     Route: 048
  2. PLAVIX [Suspect]
     Route: 048
     Dates: start: 20110429, end: 20110513
  3. ARMODAFINIL [Concomitant]
     Indication: FUNGAL INFECTION
     Route: 048
  4. NEXIUM [Concomitant]
     Route: 048
  5. ALLEGRA-D 12 HOUR [Concomitant]
     Route: 048
  6. ALBUTEROL SULFATE AUTOHALER [Concomitant]
  7. POTASSIUM CHLORIDE [Concomitant]
     Indication: NUTRITIONAL SUPPORT
     Route: 048
  8. ALL OTHER THERAPEUTIC PRODUCTS [Concomitant]
     Indication: PAIN
  9. ISOPROPYL ALCOHOL [Concomitant]
     Route: 061
  10. VALSARTAN [Concomitant]
     Indication: BLOOD PRESSURE
     Route: 048
  11. ALBUTEROL SULFATE AUTOHALER [Concomitant]
     Indication: WHEEZING
  12. HYDROCODONE BITARTRATE [Concomitant]
     Indication: PAIN
     Route: 048
  13. PLAVIX [Suspect]
     Route: 048
     Dates: start: 20110429, end: 20110513
  14. PLAVIX [Suspect]
     Indication: ANTICOAGULANT THERAPY
     Route: 048
     Dates: start: 20110429, end: 20110513
  15. NEXIUM [Concomitant]
     Route: 048
  16. ALL OTHER THERAPEUTIC PRODUCTS [Concomitant]
  17. ALBUTEROL SULFATE AUTOHALER [Concomitant]
  18. CEFUROXIME [Concomitant]
     Route: 048
  19. ALL OTHER THERAPEUTIC PRODUCTS [Concomitant]

REACTIONS (6)
  - SCAB [None]
  - DRUG HYPERSENSITIVITY [None]
  - GANGRENE [None]
  - BLISTER [None]
  - WEIGHT DECREASED [None]
  - LOCALISED INFECTION [None]
